FAERS Safety Report 7234410-4 (Version None)
Quarter: 2011Q1

REPORT INFORMATION
  Report Type: 
  Country: None (occurrence: None)
  Receive Date: 20110119
  Receipt Date: 20110115
  Transmission Date: 20110831
  Serious: Yes (Other)
  Sender: FDA-Public Use
  Company Number: US-PFIZER INC-2011010313

PATIENT
  Sex: Male
  Weight: 83.9 kg

DRUGS (2)
  1. VIAGRA [Suspect]
     Indication: ERECTILE DYSFUNCTION
     Dosage: 400 MG, UNK
     Route: 048
     Dates: start: 20110115
  2. ZYPREXA [Concomitant]
     Indication: ANXIETY
     Dosage: 5 MG, 1X/DAY
     Route: 048

REACTIONS (6)
  - MEDICATION ERROR [None]
  - DYSURIA [None]
  - ABNORMAL BEHAVIOUR [None]
  - ABDOMINAL DISCOMFORT [None]
  - FLUSHING [None]
  - TESTICULAR SWELLING [None]
